FAERS Safety Report 5464724-X (Version None)
Quarter: 2007Q3

REPORT INFORMATION
  Report Type: 
  Country: None (occurrence: None)
  Receive Date: 20070921
  Receipt Date: 20070912
  Transmission Date: 20080115
  Serious: Yes (Death, Other)
  Sender: FDA-Public Use
  Company Number: US-PFIZER INC-2007050993

PATIENT
  Sex: Male
  Weight: 102 kg

DRUGS (1)
  1. CELEBREX [Suspect]
     Indication: PAIN MANAGEMENT
     Route: 048

REACTIONS (10)
  - BACK PAIN [None]
  - CARDIAC OPERATION [None]
  - CARDIO-RESPIRATORY ARREST [None]
  - CARDIOVASCULAR DISORDER [None]
  - CEREBROVASCULAR ACCIDENT [None]
  - DRY SKIN [None]
  - EMPHYSEMA [None]
  - HYPERSOMNIA [None]
  - PAIN IN EXTREMITY [None]
  - RASH [None]
